FAERS Safety Report 22626015 (Version 1)
Quarter: 2023Q2

REPORT INFORMATION
  Report Type: Spontaneous
  Country: US (occurrence: None)
  Receive Date: 20230620
  Receipt Date: 20230620
  Transmission Date: 20230722
  Serious: No
  Sender: FDA-Public Use
  Company Number: None

PATIENT
  Sex: Female

DRUGS (11)
  1. LENVIMA [Suspect]
     Active Substance: LENVATINIB
     Indication: Uterine cancer
     Dosage: FREQUENCY : DAILY;?
     Route: 048
     Dates: start: 20230322
  2. ELIQUIS [Concomitant]
     Active Substance: APIXABAN
  3. FENTANYL TRANSDERMAL SYSTEM [Concomitant]
     Active Substance: FENTANYL
  4. OXYCODONE [Concomitant]
     Active Substance: OXYCODONE
  5. PROMETHAZINE [Concomitant]
     Active Substance: PROMETHAZINE HYDROCHLORIDE
  6. VENLAFAXINE [Concomitant]
     Active Substance: VENLAFAXINE HYDROCHLORIDE
  7. ZOLPIDEM [Concomitant]
     Active Substance: ZOLPIDEM TARTRATE
  8. TRELEGY ELLIPTA [Concomitant]
     Active Substance: FLUTICASONE FUROATE\UMECLIDINIUM BROMIDE\VILANTEROL TRIFENATATE
  9. BENZONATATE [Concomitant]
     Active Substance: BENZONATATE
  10. DIAZEPAM [Concomitant]
     Active Substance: DIAZEPAM
  11. ALBUTEROL SULFATE [Concomitant]
     Active Substance: ALBUTEROL SULFATE

REACTIONS (2)
  - Nausea [None]
  - Pain [None]
